FAERS Safety Report 8542447-8 (Version None)
Quarter: 2012Q3

REPORT INFORMATION
  Report Type: 
  Country: None (occurrence: None)
  Receive Date: 20120726
  Receipt Date: 20110720
  Transmission Date: 20120928
  Serious: Yes (Other)
  Sender: FDA-Public Use
  Company Number: US-ASTRAZENECA-2007UW19660

PATIENT
  Age: 45 Year
  Sex: Female
  Weight: 98 kg

DRUGS (24)
  1. SEROQUEL [Suspect]
     Indication: SLEEP DISORDER
     Dosage: VARIOUS DOSES INCLUDING BUT NOT LIMITED TO 100 MG AND 300 MG
     Route: 048
     Dates: start: 20000101
  2. SEROQUEL [Suspect]
     Dosage: 100 MG TO 600 MG(FLUCTUATING)
     Route: 048
     Dates: start: 20000816
  3. QUINAPRIL [Concomitant]
     Dates: start: 20031209
  4. PROTONIX [Concomitant]
     Route: 048
     Dates: start: 20040215
  5. METFORMIN HYDROCHLORIDE [Concomitant]
     Route: 048
     Dates: start: 20050420
  6. SEROQUEL [Suspect]
     Dosage: 100 MG TO 600 MG(FLUCTUATING)
     Route: 048
     Dates: start: 20000816
  7. HYDROXYZINE [Concomitant]
     Indication: ANXIETY
     Dosage: 25 MG TO 50 MG, TWO TIMES A DAY
     Route: 048
     Dates: start: 19970905
  8. SERZONE [Concomitant]
     Route: 048
     Dates: start: 20010220
  9. SEROQUEL [Suspect]
     Dosage: 100 MG TO 600 MG(FLUCTUATING)
     Route: 048
     Dates: start: 20000816
  10. CLONIDINE [Concomitant]
     Route: 048
     Dates: start: 19990612
  11. REMERON [Concomitant]
     Dosage: 15 MG TO 30 MG, AT NIGHT
     Route: 048
     Dates: start: 19990802
  12. SEROQUEL [Suspect]
     Indication: DEPRESSION
     Dosage: VARIOUS DOSES INCLUDING BUT NOT LIMITED TO 100 MG AND 300 MG
     Route: 048
     Dates: start: 20000101
  13. SEROQUEL [Suspect]
     Dosage: 100 MG TO 600 MG(FLUCTUATING)
     Route: 048
     Dates: start: 20000816
  14. EFFEXOR XR [Concomitant]
     Route: 048
     Dates: start: 20040215
  15. ALTACE [Concomitant]
     Route: 048
     Dates: start: 20040224
  16. SEROQUEL [Suspect]
     Indication: AGITATION
     Dosage: VARIOUS DOSES INCLUDING BUT NOT LIMITED TO 100 MG AND 300 MG
     Route: 048
     Dates: start: 20000101
  17. SEROQUEL [Suspect]
     Indication: AFFECTIVE DISORDER
     Dosage: VARIOUS DOSES INCLUDING BUT NOT LIMITED TO 100 MG AND 300 MG
     Route: 048
     Dates: start: 20000101
  18. SEROQUEL [Suspect]
     Dosage: 100 MG TO 600 MG(FLUCTUATING)
     Route: 048
     Dates: start: 20000816
  19. SEROQUEL [Suspect]
     Indication: INSOMNIA
     Dosage: VARIOUS DOSES INCLUDING BUT NOT LIMITED TO 100 MG AND 300 MG
     Route: 048
     Dates: start: 20000101
  20. VERAPAMIL EXTENDED-RELEASE [Concomitant]
     Route: 048
     Dates: start: 20040215
  21. LEXAPRO [Concomitant]
     Route: 048
     Dates: start: 20040224
  22. SEROQUEL [Suspect]
     Indication: PSYCHOTIC DISORDER
     Dosage: VARIOUS DOSES INCLUDING BUT NOT LIMITED TO 100 MG AND 300 MG
     Route: 048
     Dates: start: 20000101
  23. SEROQUEL [Suspect]
     Dosage: 100 MG TO 600 MG(FLUCTUATING)
     Route: 048
     Dates: start: 20000816
  24. PAXIL [Concomitant]
     Route: 048
     Dates: start: 19990802

REACTIONS (12)
  - PANCREATITIS [None]
  - CARDIAC FAILURE CONGESTIVE [None]
  - ASTHMA [None]
  - WEIGHT INCREASED [None]
  - VISUAL ACUITY REDUCED [None]
  - CEREBROVASCULAR ACCIDENT [None]
  - TYPE 2 DIABETES MELLITUS [None]
  - ARTHRITIS [None]
  - TYPE 1 DIABETES MELLITUS [None]
  - HYPERLIPIDAEMIA [None]
  - SUICIDE ATTEMPT [None]
  - BLOOD CHOLESTEROL INCREASED [None]
